FAERS Safety Report 21581974 (Version 1)
Quarter: 2022Q4

REPORT INFORMATION
  Report Type: Spontaneous
  Country: DE (occurrence: DE)
  Receive Date: 20221111
  Receipt Date: 20221111
  Transmission Date: 20230113
  Serious: Yes (Other)
  Sender: FDA-Public Use
  Company Number: DE-BRISTOL-MYERS SQUIBB COMPANY-2022-132786

PATIENT
  Age: 75 Year
  Sex: Female

DRUGS (3)
  1. NIVOLUMAB [Suspect]
     Active Substance: NIVOLUMAB
     Indication: Malignant melanoma
     Dosage: DOSE : PLEASE SEE EVENT^S FIELD;     FREQ : UNAVAILABLE
     Route: 065
     Dates: start: 202002, end: 202004
  2. NIVOLUMAB [Suspect]
     Active Substance: NIVOLUMAB
     Route: 065
     Dates: start: 202006, end: 20200625
  3. IPILIMUMAB [Suspect]
     Active Substance: IPILIMUMAB
     Indication: Malignant melanoma
     Route: 065

REACTIONS (3)
  - Fatigue [Unknown]
  - Encephalitis autoimmune [Recovering/Resolving]
  - Aplasia pure red cell [Unknown]

NARRATIVE: CASE EVENT DATE: 20200601
